FAERS Safety Report 9003943 (Version 2)
Quarter: 2013Q1

REPORT INFORMATION
  Report Type: Spontaneous
  Country: US (occurrence: US)
  Receive Date: 20130108
  Receipt Date: 20130131
  Transmission Date: 20140127
  Serious: Yes (Hospitalization)
  Sender: FDA-Public Use
  Company Number: US-GILEAD-2013-0067250

PATIENT
  Sex: 0

DRUGS (1)
  1. LETAIRIS [Suspect]
     Indication: PORTOPULMONARY HYPERTENSION
     Dosage: UNK
     Route: 048
     Dates: start: 201212

REACTIONS (2)
  - Blood bilirubin increased [Unknown]
  - Weight increased [Unknown]
